FAERS Safety Report 6195789-8 (Version None)
Quarter: 2009Q2

REPORT INFORMATION
  Report Type: 
  Country: None (occurrence: None)
  Receive Date: 20090520
  Receipt Date: 20071218
  Transmission Date: 20091009
  Serious: Yes (Hospitalization)
  Sender: FDA-Public Use
  Company Number: US-ASTRAZENECA-2007UW19272

PATIENT
  Age: 12678 Day
  Sex: Male
  Weight: 104.3 kg

DRUGS (31)
  1. SEROQUEL [Suspect]
     Indication: SLEEP DISORDER
     Route: 048
     Dates: start: 20000401, end: 20041101
  2. SEROQUEL [Suspect]
     Indication: BIPOLAR DISORDER
     Route: 048
     Dates: start: 20000401, end: 20041101
  3. SEROQUEL [Suspect]
     Indication: SCHIZOPHRENIA, PARANOID TYPE
     Route: 048
     Dates: start: 20000401, end: 20041101
  4. SEROQUEL [Suspect]
     Route: 048
     Dates: start: 20030822, end: 20050621
  5. SEROQUEL [Suspect]
     Route: 048
     Dates: start: 20030822, end: 20050621
  6. SEROQUEL [Suspect]
     Route: 048
     Dates: start: 20030822, end: 20050621
  7. SEROQUEL [Suspect]
     Dosage: 25 MG TO 400 MG
     Route: 048
     Dates: start: 20000401
  8. SEROQUEL [Suspect]
     Dosage: 25 MG TO 400 MG
     Route: 048
     Dates: start: 20000401
  9. SEROQUEL [Suspect]
     Dosage: 25 MG TO 400 MG
     Route: 048
     Dates: start: 20000401
  10. TRAZODONE HCL [Concomitant]
     Indication: INSOMNIA
     Dosage: 30 MG TO 200 MG
     Route: 048
  11. TRAZODONE HCL [Concomitant]
     Indication: BIPOLAR DISORDER
     Dosage: 30 MG TO 200 MG
     Route: 048
  12. LITHIUM [Concomitant]
     Indication: BIPOLAR DISORDER
     Dosage: 150 MG TO 1 200 MG
     Route: 048
  13. LEXAPRO [Concomitant]
     Dosage: 10 MG TO 30 MG
     Route: 048
  14. ZYPREXA [Concomitant]
     Dosage: 10 MG TO 30 MG
     Route: 048
  15. GLYBURIDE [Concomitant]
     Dosage: 5 MG TO 10 MG
     Route: 048
  16. COGENTIN [Concomitant]
     Route: 048
  17. MELLARIL [Concomitant]
     Dosage: 50 MG TO 150 MG
     Route: 065
  18. ZOLOFT [Concomitant]
     Dosage: 50 MG TO 200 MG
     Route: 048
  19. NOVOLIN N [Concomitant]
     Dosage: 10 UNITS TO 40 UNITS
     Route: 058
  20. RISPERDAL [Concomitant]
     Route: 048
     Dates: end: 20060413
  21. ATIVAN [Concomitant]
     Indication: ANXIETY
     Dosage: 3 MG TO 12 MG
     Route: 048
  22. ATIVAN [Concomitant]
     Indication: AGITATION
     Dosage: 3 MG TO 12 MG
     Route: 048
  23. REMERON [Concomitant]
     Dosage: 15 MG TO 45 MG
     Route: 048
  24. GLIPIZIDE [Concomitant]
     Route: 048
  25. METFORMIN HCL [Concomitant]
     Route: 048
  26. SIMVASTATIN [Concomitant]
     Route: 048
  27. NIACIN [Concomitant]
     Route: 048
  28. ASPIRIN [Concomitant]
     Route: 048
  29. CELEXA [Concomitant]
     Route: 048
  30. KLONOPIN [Concomitant]
     Dosage: 1 MG TO 6 MG
     Route: 048
     Dates: start: 20040811
  31. DEPAKOTE [Concomitant]
     Dosage: 500 MG TO 1000 MG
     Route: 048

REACTIONS (48)
  - ABDOMINAL PAIN [None]
  - AFFECTIVE DISORDER [None]
  - AGGRESSION [None]
  - ALCOHOLISM [None]
  - ANXIETY [None]
  - ANXIETY DISORDER [None]
  - BACK PAIN [None]
  - BLISTER [None]
  - BRONCHOSPASM [None]
  - CHEST PAIN [None]
  - CHRONIC OBSTRUCTIVE PULMONARY DISEASE [None]
  - CONVULSION [None]
  - DERMATITIS ALLERGIC [None]
  - DIZZINESS [None]
  - DRUG ABUSE [None]
  - DRUG DEPENDENCE [None]
  - DYSPEPSIA [None]
  - DYSURIA [None]
  - EAR INFECTION [None]
  - FATIGUE [None]
  - FEELING ABNORMAL [None]
  - GLYCOSURIA [None]
  - HAEMATURIA [None]
  - HEADACHE [None]
  - HEPATITIS C [None]
  - HYPERGLYCAEMIA [None]
  - HYPOAESTHESIA [None]
  - INFLUENZA [None]
  - INTENTIONAL OVERDOSE [None]
  - MUSCLE INJURY [None]
  - MUSCULOSKELETAL CHEST PAIN [None]
  - MUSCULOSKELETAL PAIN [None]
  - NASAL CONGESTION [None]
  - NICOTINE DEPENDENCE [None]
  - OBESITY [None]
  - OROPHARYNGEAL PAIN [None]
  - POLYP [None]
  - POST-TRAUMATIC STRESS DISORDER [None]
  - PRURITUS [None]
  - RECTAL HAEMORRHAGE [None]
  - RHINITIS [None]
  - RHINITIS ALLERGIC [None]
  - SCROTAL ABSCESS [None]
  - SINUS CONGESTION [None]
  - SUICIDAL IDEATION [None]
  - THROMBOCYTOPENIA [None]
  - TYPE 2 DIABETES MELLITUS [None]
  - VIRAL UPPER RESPIRATORY TRACT INFECTION [None]
